FAERS Safety Report 19050712 (Version 1)
Quarter: 2021Q1

REPORT INFORMATION
  Report Type: Report from Study
  Country: US (occurrence: US)
  Receive Date: 20210323
  Receipt Date: 20210323
  Transmission Date: 20210420
  Serious: Yes (Hospitalization)
  Sender: FDA-Public Use
  Company Number: US-EISAI MEDICAL RESEARCH-EC-2021-089791

PATIENT
  Age: 57 Year
  Sex: Female
  Weight: 104 kg

DRUGS (32)
  1. LORAZEPAM. [Concomitant]
     Active Substance: LORAZEPAM
  2. BENADRYL [Concomitant]
     Active Substance: DIPHENHYDRAMINE HYDROCHLORIDE
  3. ZINC. [Concomitant]
     Active Substance: ZINC
  4. LOPERAMIDE [Concomitant]
     Active Substance: LOPERAMIDE
  5. CALCIUM CARBONATE. [Concomitant]
     Active Substance: CALCIUM CARBONATE
  6. GABAPENTIN. [Concomitant]
     Active Substance: GABAPENTIN
  7. PSYLLIUM HUSK. [Concomitant]
     Active Substance: PSYLLIUM HUSK
  8. MAGOX [Concomitant]
  9. CALCIUM CITRATE?D3?MAGNESIUM [Concomitant]
  10. FERROUS SULFATE. [Concomitant]
     Active Substance: FERROUS SULFATE
  11. ALEVE [Concomitant]
     Active Substance: NAPROXEN SODIUM
  12. MORPHINE [Concomitant]
     Active Substance: MORPHINE
  13. OXYCONTIN [Concomitant]
     Active Substance: OXYCODONE HYDROCHLORIDE
  14. ZOLPIDEM [Concomitant]
     Active Substance: ZOLPIDEM TARTRATE
  15. BIOTIN [Concomitant]
     Active Substance: BIOTIN
  16. ALBUTEROL. [Concomitant]
     Active Substance: ALBUTEROL
  17. AZITHROMYCIN ANHYDROUS. [Concomitant]
     Active Substance: AZITHROMYCIN ANHYDROUS
  18. ONDANSETRON [Concomitant]
     Active Substance: ONDANSETRON
  19. HYDROMORPHONE HCL [Concomitant]
     Active Substance: HYDROMORPHONE HYDROCHLORIDE
  20. CHEWABLE IRON [Concomitant]
  21. ALPRAZOLAM. [Concomitant]
     Active Substance: ALPRAZOLAM
  22. VITAMIN D2 [Concomitant]
     Active Substance: ERGOCALCIFEROL
  23. LENVIMA [Suspect]
     Active Substance: LENVATINIB
     Indication: BREAST CANCER METASTATIC
     Route: 048
     Dates: start: 20210114, end: 202103
  24. MAGNESIUM OXIDE. [Concomitant]
     Active Substance: MAGNESIUM OXIDE
  25. VITAMIN D3 [Concomitant]
     Active Substance: CHOLECALCIFEROL
  26. AUGMENTIN [Concomitant]
     Active Substance: AMOXICILLIN\CLAVULANATE POTASSIUM
  27. FENTANYL. [Concomitant]
     Active Substance: FENTANYL
  28. KEYTRUDA [Suspect]
     Active Substance: PEMBROLIZUMAB
     Indication: PRODUCT USED FOR UNKNOWN INDICATION
     Dosage: UNKNOWN DOSE AND FREQUENCY
  29. PROPRANOLOL HCL [Concomitant]
     Active Substance: PROPRANOLOL HYDROCHLORIDE
  30. LOSARTAN. [Concomitant]
     Active Substance: LOSARTAN
  31. METOPROLOL. [Concomitant]
     Active Substance: METOPROLOL
  32. ROSUVASTATIN. [Concomitant]
     Active Substance: ROSUVASTATIN

REACTIONS (3)
  - Arthralgia [Recovering/Resolving]
  - Pain [Unknown]
  - Asthenia [Unknown]

NARRATIVE: CASE EVENT DATE: 2021
